FAERS Safety Report 7509893-2 (Version None)
Quarter: 2011Q2

REPORT INFORMATION
  Report Type: 
  Country: None (occurrence: None)
  Receive Date: 20110519
  Receipt Date: 20110505
  Transmission Date: 20111010
  Serious: Yes (Hospitalization)
  Sender: FDA-Public Use
  Company Number: 2011MA005450

PATIENT
  Age: 49 Year
  Sex: Female

DRUGS (2)
  1. TRIAMCINOLONE ACETONIDE [Suspect]
  2. THYROXINE (NO PREF. NAME) [Suspect]
     Dosage: 50 UG

REACTIONS (18)
  - AGITATION [None]
  - PALLOR [None]
  - HYPOCHLORAEMIA [None]
  - HYPOPITUITARISM [None]
  - SECONDARY ADRENOCORTICAL INSUFFICIENCY [None]
  - HYPONATRAEMIA [None]
  - NAUSEA [None]
  - BLOOD THYROID STIMULATING HORMONE DECREASED [None]
  - MYDRIASIS [None]
  - LETHARGY [None]
  - HYPOGLYCAEMIA [None]
  - ALCOHOL USE [None]
  - FATIGUE [None]
  - SOMNOLENCE [None]
  - VOMITING [None]
  - QUADRIPARESIS [None]
  - HEADACHE [None]
  - INAPPROPRIATE ANTIDIURETIC HORMONE SECRETION [None]
